FAERS Safety Report 5234954-0 (Version None)
Quarter: 2007Q1

REPORT INFORMATION
  Report Type: 
  Country: None (occurrence: None)
  Receive Date: 20070210
  Receipt Date: 20070201
  Transmission Date: 20070707
  Serious: Yes (Hospitalization)
  Sender: FDA-Public Use
  Company Number: BE-ABBOTT-07P-013-0358214-00

PATIENT
  Sex: Male

DRUGS (2)
  1. HUMIRA [Suspect]
     Indication: ANKYLOSING SPONDYLITIS
     Dates: start: 20060831
  2. HUMIRA [Suspect]
     Dosage: DISCONTINUED FOR ONE WEEK

REACTIONS (1)
  - BENIGN PROSTATIC HYPERPLASIA [None]
